FAERS Safety Report 15300731 (Version 2)
Quarter: 2018Q3

REPORT INFORMATION
  Report Type: Report from Study
  Country: MX (occurrence: MX)
  Receive Date: 20180821
  Receipt Date: 20180904
  Transmission Date: 20181010
  Serious: Yes (Hospitalization)
  Sender: FDA-Public Use
  Company Number: PHHY2018MX077130

PATIENT
  Sex: Female

DRUGS (7)
  1. INSULIN [Concomitant]
     Active Substance: INSULIN NOS
     Indication: DIABETES MELLITUS
     Dosage: 14 OT (14 UNITS), QD
     Route: 065
  2. CARBAMAZEPINE. [Concomitant]
     Active Substance: CARBAMAZEPINE
     Indication: PRODUCT USED FOR UNKNOWN INDICATION
     Route: 065
  3. CO?DIOVAN [Suspect]
     Active Substance: HYDROCHLOROTHIAZIDE\VALSARTAN
     Indication: HYPERTENSION
     Dosage: 1 DF, QD (HYDROCHLOROTHIAZIDE 12.5MG, VALSARTAN 80 MG)
     Route: 048
  4. NOVOTIRAL [Concomitant]
     Active Substance: LEVOTHYROXINE
     Dosage: 1 DF, QD (DAILY ON MONDAY AND THURSDAY) (AS REPORTED)
     Route: 065
  5. TEGRETOL [Suspect]
     Active Substance: CARBAMAZEPINE
     Indication: TRIGEMINAL NERVE DISORDER
     Dosage: 4 DF (400 MG), QD
     Route: 048
     Dates: start: 2011
  6. NOVOTIRAL [Concomitant]
     Active Substance: LEVOTHYROXINE
     Indication: THYROID DISORDER
     Dosage: 1 DF (1 AND HALF), ON TUESDAY, WEDNESDAY, FRIDAY, SATURDAY AND SUNDAY (AS REPORTED)
     Route: 065
  7. INSULIN [Concomitant]
     Active Substance: INSULIN NOS
     Dosage: 10 IU, QD (IN THE MORNING)
     Route: 065

REACTIONS (4)
  - Vertigo [Recovered/Resolved]
  - Illusion [Recovered/Resolved]
  - Feeling abnormal [Recovered/Resolved]
  - Speech disorder [Recovered/Resolved]

NARRATIVE: CASE EVENT DATE: 2011
